FAERS Safety Report 20301691 (Version 1)
Quarter: 2022Q1

REPORT INFORMATION
  Report Type: Report from Study
  Country: FR (occurrence: FR)
  Receive Date: 20220105
  Receipt Date: 20220105
  Transmission Date: 20220423
  Serious: Yes (Hospitalization)
  Sender: FDA-Public Use
  Company Number: FR-SERVIER-S21014307

PATIENT

DRUGS (8)
  1. PEGASPARGASE [Suspect]
     Active Substance: PEGASPARGASE
     Indication: Acute lymphocytic leukaemia
     Dosage: 562 IU, D15
     Route: 042
     Dates: start: 20200707
  2. MERCAPTOPURINE [Suspect]
     Active Substance: MERCAPTOPURINE
     Indication: Acute lymphocytic leukaemia
     Dosage: 26 MG, D1 TO D14, D29 TO D42
     Route: 048
     Dates: start: 20200623
  3. CYCLOPHOSPHAMIDE [Suspect]
     Active Substance: CYCLOPHOSPHAMIDE
     Indication: Acute lymphocytic leukaemia
     Dosage: 460 MG, D1 TO D29
     Route: 042
     Dates: start: 20200623, end: 20200725
  4. CYTARABINE [Suspect]
     Active Substance: CYTARABINE
     Indication: Acute lymphocytic leukaemia
     Dosage: 34 MG, D3 TO D6, D10 TO 13, D31
     Route: 042
     Dates: start: 20200625
  5. CYTARABINE [Suspect]
     Active Substance: CYTARABINE
     Dosage: 20 MG, D3 AND D31
     Route: 037
     Dates: start: 20200625, end: 20200727
  6. METHOTREXATE [Suspect]
     Active Substance: METHOTREXATE
     Indication: Acute lymphocytic leukaemia
     Dosage: 8 MG, D3 AND D31
     Route: 037
     Dates: start: 20200625, end: 20200727
  7. HYDROCORTISONE [Suspect]
     Active Substance: HYDROCORTISONE
     Indication: Acute lymphocytic leukaemia
     Dosage: 10 MG, D3 AND D31
     Route: 037
     Dates: start: 20200625, end: 20200727
  8. VINCRISTINE SULFATE [Suspect]
     Active Substance: VINCRISTINE SULFATE
     Indication: Acute lymphocytic leukaemia
     Dosage: 0.7 MG, D15 AND D22
     Route: 042
     Dates: start: 20200707

REACTIONS (1)
  - Staphylococcal sepsis [Recovered/Resolved]

NARRATIVE: CASE EVENT DATE: 20200801
